FAERS Safety Report 10565222 (Version 1)
Quarter: 2014Q4

REPORT INFORMATION
  Report Type: Spontaneous
  Country: DZ (occurrence: None)
  Receive Date: 20141103
  Receipt Date: 20141103
  Transmission Date: 20150529
  Serious: Yes (Hospitalization)
  Sender: FDA-Public Use
  Company Number: 2014DZ0460

PATIENT
  Age: 3 Year
  Sex: Female

DRUGS (2)
  1. KINERET [Suspect]
     Active Substance: ANAKINRA
     Route: 058
     Dates: start: 20141001, end: 20141015
  2. KINERET [Suspect]
     Active Substance: ANAKINRA
     Indication: JUVENILE IDIOPATHIC ARTHRITIS
     Route: 058
     Dates: start: 20141001, end: 20141015

REACTIONS (5)
  - General physical health deterioration [None]
  - Diarrhoea [None]
  - Pyrexia [None]
  - Histiocytosis haematophagic [None]
  - Headache [None]

NARRATIVE: CASE EVENT DATE: 20141004
